FAERS Safety Report 7191983-8 (Version None)
Quarter: 2010Q4

REPORT INFORMATION
  Report Type: 
  Country: None (occurrence: None)
  Receive Date: 20101223
  Receipt Date: 20100820
  Transmission Date: 20110411
  Serious: No
  Sender: FDA-Public Use
  Company Number: US-AMGEN-TCS432994

PATIENT

DRUGS (2)
  1. ENBREL [Suspect]
     Indication: RHEUMATOID ARTHRITIS
     Dosage: 50 MG, QWK
     Route: 058
     Dates: start: 20100210
  2. METHOTREXATE [Concomitant]
     Dosage: UNK UNK, UNK

REACTIONS (10)
  - ANXIETY [None]
  - ARTHRALGIA [None]
  - EMOTIONAL DISORDER [None]
  - ERYTHEMA [None]
  - GLUCOSE TOLERANCE IMPAIRED [None]
  - INJECTION SITE PAIN [None]
  - INSOMNIA [None]
  - JOINT SWELLING [None]
  - JOINT WARMTH [None]
  - RHEUMATOID NODULE [None]
